FAERS Safety Report 5425341-0 (Version None)
Quarter: 2007Q3

REPORT INFORMATION
  Report Type: 
  Country: None (occurrence: None)
  Receive Date: 20070824
  Receipt Date: 20070814
  Transmission Date: 20080115
  Serious: Yes (Hospitalization, Other)
  Sender: FDA-Public Use
  Company Number: US-SHR-US-2007-030514

PATIENT
  Age: 35 Year
  Sex: Female

DRUGS (1)
  1. BETASERON [Suspect]
     Dosage: 8 MIU, EVERY 2D
     Route: 058
     Dates: start: 20070127

REACTIONS (5)
  - BACK PAIN [None]
  - BLINDNESS TRANSIENT [None]
  - INSOMNIA [None]
  - NASOPHARYNGITIS [None]
  - PAIN IN EXTREMITY [None]
